FAERS Safety Report 20507414 (Version 2)
Quarter: 2022Q1

REPORT INFORMATION
  Report Type: Report from Study
  Country: DO (occurrence: DO)
  Receive Date: 20220223
  Receipt Date: 20220329
  Transmission Date: 20220423
  Serious: Yes (Life-Threatening, Other)
  Sender: FDA-Public Use
  Company Number: DO-NOVARTISPH-NVSC2021DO297340

PATIENT
  Sex: Female
  Weight: 41.723 kg

DRUGS (4)
  1. KISQALI [Suspect]
     Active Substance: RIBOCICLIB
     Indication: Breast cancer
     Dosage: 600 MG, QD
     Route: 048
     Dates: start: 20211210
  2. KISQALI [Suspect]
     Active Substance: RIBOCICLIB
     Dosage: 400 MG, QD
     Route: 048
     Dates: start: 20211210
  3. TENOFED [Concomitant]
     Indication: Gastrointestinal disorder
     Route: 065
  4. AROMASIN [Concomitant]
     Active Substance: EXEMESTANE
     Indication: Product used for unknown indication
     Dosage: UNK
     Route: 065

REACTIONS (24)
  - Platelet count decreased [Unknown]
  - White blood cell count decreased [Unknown]
  - Haematochezia [Unknown]
  - Mouth haemorrhage [Unknown]
  - Hepatitis [Unknown]
  - Malaise [Unknown]
  - Pain [Unknown]
  - Ocular icterus [Unknown]
  - Epistaxis [Unknown]
  - Skin exfoliation [Unknown]
  - Hyperglycaemia [Unknown]
  - Gastritis [Unknown]
  - Feeding disorder [Unknown]
  - Weight decreased [Unknown]
  - Oropharyngeal discomfort [Unknown]
  - Alopecia [Unknown]
  - Madarosis [Unknown]
  - Diplopia [Unknown]
  - Vision blurred [Unknown]
  - Dizziness [Unknown]
  - Headache [Unknown]
  - Vomiting [Unknown]
  - Dysstasia [Unknown]
  - Movement disorder [Unknown]
